FAERS Safety Report 6201573-9 (Version None)
Quarter: 2009Q2

REPORT INFORMATION
  Report Type: 
  Country: None (occurrence: None)
  Receive Date: 20090519
  Receipt Date: 20090511
  Transmission Date: 20091009
  Serious: Yes (Hospitalization)
  Sender: FDA-Public Use
  Company Number: 2009JP002765

PATIENT
  Age: 53 Year
  Sex: Female

DRUGS (1)
  1. PROGRAF [Suspect]
     Indication: INTERSTITIAL LUNG DISEASE
     Dosage: 4 MG, D, ORAL
     Route: 048
     Dates: start: 20090401, end: 20090501

REACTIONS (4)
  - HAEMOLYTIC ANAEMIA [None]
  - MICROANGIOPATHY [None]
  - PLATELET COUNT DECREASED [None]
  - PNEUMONIA CYTOMEGALOVIRAL [None]
